FAERS Safety Report 10055155 (Version 2)
Quarter: 2014Q2

REPORT INFORMATION
  Report Type: Spontaneous
  Country: IN (occurrence: IN)
  Receive Date: 20140402
  Receipt Date: 20140620
  Transmission Date: 20141212
  Serious: Yes (Death, Hospitalization, Other)
  Sender: FDA-Public Use
  Company Number: PHHY2014IN037736

PATIENT
  Age: 70 Year
  Sex: Female
  Weight: 60.4 kg

DRUGS (8)
  1. AFINITOR [Suspect]
     Indication: BREAST CANCER
     Dosage: 10 MG, QD
     Route: 048
  2. AFINITOR [Suspect]
     Dosage: 5 MG, UNK
  3. STAMLO [Concomitant]
     Dosage: 5 MG, QD
     Route: 048
  4. ATORVASTATIN [Concomitant]
     Dosage: 10 MG, QD
     Route: 048
  5. ECOSPRIN [Concomitant]
     Dosage: 75 MG, QD
     Route: 048
  6. CALCIUM [Concomitant]
     Dosage: 500 MG, QD
     Route: 048
  7. TAMOXIFEN [Concomitant]
  8. ANASTROZOLE [Concomitant]
     Dosage: 1 MG, QD
     Route: 048

REACTIONS (12)
  - Legionella infection [Recovered/Resolved]
  - Dyspnoea [Unknown]
  - Chest discomfort [Unknown]
  - Upper airway obstruction [Unknown]
  - Choking [Unknown]
  - Disease progression [Unknown]
  - Death [Fatal]
  - Azotaemia [Unknown]
  - Metabolic syndrome [Unknown]
  - Macular oedema [Unknown]
  - Aphthous stomatitis [Unknown]
  - Chronic obstructive pulmonary disease [Unknown]
